FAERS Safety Report 7278966-4 (Version None)
Quarter: 2011Q1

REPORT INFORMATION
  Report Type: 
  Country: None (occurrence: None)
  Receive Date: 20110207
  Receipt Date: 20110126
  Transmission Date: 20110831
  Serious: Yes (Other)
  Sender: FDA-Public Use
  Company Number: PHHY2011FR06583

PATIENT
  Age: 50 Year
  Sex: Female

DRUGS (2)
  1. AFINITOR [Suspect]
     Dosage: 5 MG, DAILY
  2. AFINITOR [Suspect]
     Dosage: UNK

REACTIONS (2)
  - INTERSTITIAL LUNG DISEASE [None]
  - LUNG DISORDER [None]
